FAERS Safety Report 7081805-8 (Version None)
Quarter: 2010Q4

REPORT INFORMATION
  Report Type: 
  Country: None (occurrence: None)
  Receive Date: 20101103
  Receipt Date: 20101021
  Transmission Date: 20110411
  Serious: Yes (Hospitalization)
  Sender: FDA-Public Use
  Company Number: CA-ELI_LILLY_AND_COMPANY-CA201010005357

PATIENT
  Sex: Female

DRUGS (1)
  1. ZYPREXA ZYDIS [Suspect]

REACTIONS (2)
  - DRUG DOSE OMISSION [None]
  - HOSPITALISATION [None]
